FAERS Safety Report 8836943 (Version 1)
Quarter: 2012Q4

REPORT INFORMATION
  Report Type: 
  Country: US (occurrence: US)
  Receive Date: 20121012
  Receipt Date: 20121012
  Transmission Date: 20130627
  Serious: Yes (Other)
  Sender: FDA-Public Use
  Company Number: US-PFIZER INC-2012252479

PATIENT
  Age: 61 Year

DRUGS (10)
  1. LYRICA [Suspect]
     Dosage: 100 mg (1), 3x/day (TID)
  2. VENLAFAXINE [Concomitant]
     Dosage: UNK
  3. XELODA [Concomitant]
     Dosage: UNK
  4. RITALIN [Concomitant]
     Dosage: UNK
  5. ALBUTEROL [Concomitant]
     Dosage: UNK
  6. DEXAMETHASONE [Concomitant]
     Dosage: UNK
  7. LANTUS [Concomitant]
     Dosage: UNK
  8. PRILOSEC [Concomitant]
     Dosage: UNK
  9. OXYCONTIN [Concomitant]
     Dosage: UNK
  10. MS [Concomitant]
     Dosage: UNK

REACTIONS (2)
  - Convulsion [Unknown]
  - Brain neoplasm [Unknown]
